FAERS Safety Report 23637473 (Version 1)
Quarter: 2024Q1

REPORT INFORMATION
  Report Type: Spontaneous
  Country: JP (occurrence: JP)
  Receive Date: 20240315
  Receipt Date: 20240315
  Transmission Date: 20240409
  Serious: Yes (Other)
  Sender: FDA-Public Use
  Company Number: JP-GENMAB-2024-00775

PATIENT
  Age: 71 Year
  Sex: Male

DRUGS (5)
  1. EPKINLY [Suspect]
     Active Substance: EPCORITAMAB-BYSP
     Indication: High-grade B-cell lymphoma
     Dosage: 0.16 MILLIGRAM, SINGLE, WEEK 1, DAY1
     Route: 058
  2. EPKINLY [Suspect]
     Active Substance: EPCORITAMAB-BYSP
     Dosage: 0.8 MILLIGRAM, SINGLE, WEEK 2, DAY 8
     Route: 058
  3. EPKINLY [Suspect]
     Active Substance: EPCORITAMAB-BYSP
     Dosage: 48 MILLIGRAM, FROM WEEK 3, DAY19
     Route: 058
  4. DEXAMETHASONE [Concomitant]
     Active Substance: DEXAMETHASONE
     Dosage: 16 MILLIGRAM, WEEK 1 D1-D4, WEEK 2 D8-D11, WEEK 3 D19-D22
  5. DEXAMETHASONE [Concomitant]
     Active Substance: DEXAMETHASONE
     Dosage: 15 MILLIGRAM, WEEK 4 D26-D28

REACTIONS (3)
  - High-grade B-cell lymphoma [Unknown]
  - Cytokine release syndrome [Recovered/Resolved]
  - Cytomegalovirus test positive [Unknown]
